FAERS Safety Report 8016323-3 (Version None)
Quarter: 2011Q4

REPORT INFORMATION
  Report Type: 
  Country: None (occurrence: None)
  Receive Date: 20111230
  Receipt Date: 20111219
  Transmission Date: 20120403
  Serious: Yes (Hospitalization, Other)
  Sender: FDA-Public Use
  Company Number: US-MERCK-1104USA03723

PATIENT
  Age: 76 Year
  Sex: Female
  Weight: 54 kg

DRUGS (11)
  1. FOSAMAX [Suspect]
     Route: 065
     Dates: start: 20000101
  2. PREMARIN [Concomitant]
     Route: 065
  3. LOTENSION (BENAZEPRIL HYDROCHLORIDE) [Concomitant]
     Route: 065
  4. ALENDRONATE SODIUM [Suspect]
     Route: 048
     Dates: start: 20091201
  5. FOSAMAX [Suspect]
     Indication: OSTEOPOROSIS
     Route: 048
     Dates: start: 20010401, end: 20050901
  6. FOSAMAX [Suspect]
     Route: 048
     Dates: start: 20001024, end: 20010412
  7. ALENDRONATE SODIUM [Suspect]
     Indication: OSTEOPENIA
     Route: 048
     Dates: start: 20081010, end: 20090611
  8. DITROPAN [Concomitant]
     Indication: URINARY INCONTINENCE
     Route: 065
  9. FOSAMAX PLUS D [Suspect]
     Indication: OSTEOPENIA
     Route: 048
     Dates: start: 20051201, end: 20070901
  10. FOSAMAX [Suspect]
     Route: 048
     Dates: end: 20080214
  11. FOSAMAX [Suspect]
     Indication: OSTEOPENIA
     Route: 048
     Dates: start: 20080425, end: 20080701

REACTIONS (27)
  - BLADDER DISORDER [None]
  - RECTOCELE [None]
  - MALAISE [None]
  - DEPRESSION [None]
  - HAEMOGLOBIN DECREASED [None]
  - OSTEOARTHRITIS [None]
  - ANAEMIA [None]
  - HYPERTENSION [None]
  - FEMUR FRACTURE [None]
  - URINARY INCONTINENCE [None]
  - STRESS [None]
  - AUTOMATIC BLADDER [None]
  - DEHYDRATION [None]
  - ARTHROPATHY [None]
  - DRUG HYPERSENSITIVITY [None]
  - SPONDYLOLISTHESIS [None]
  - BACK PAIN [None]
  - ANXIETY [None]
  - CYSTOCELE [None]
  - HAEMATOCRIT DECREASED [None]
  - ALLERGY TO VACCINE [None]
  - HYPERLIPIDAEMIA [None]
  - ARTHRITIS [None]
  - OVARIAN DISORDER [None]
  - HYPERSENSITIVITY [None]
  - BLOOD CHOLESTEROL INCREASED [None]
  - BREAST DISORDER [None]
